FAERS Safety Report 12318226 (Version 1)
Quarter: 2016Q2

REPORT INFORMATION
  Report Type: Spontaneous
  Country: US (occurrence: US)
  Receive Date: 20160429
  Receipt Date: 20160429
  Transmission Date: 20160815
  Serious: Yes (Other)
  Sender: FDA-Public Use
  Company Number: US-BEH-2016061699

PATIENT
  Sex: Female
  Weight: 78 kg

DRUGS (18)
  1. LMX [Concomitant]
     Active Substance: LIDOCAINE
  2. CYCLOBENZAPRINE [Concomitant]
     Active Substance: CYCLOBENZAPRINE
  3. VITAMIN B12 [Concomitant]
     Active Substance: CYANOCOBALAMIN
  4. TOPAMAX [Concomitant]
     Active Substance: TOPIRAMATE
  5. CENTRUM COMPLETE [Concomitant]
  6. VITAMIN B6 [Concomitant]
     Active Substance: PYRIDOXINE HYDROCHLORIDE
  7. ST JOHN^S WORT [Concomitant]
     Active Substance: ST. JOHN^S WORT
  8. HIZENTRA [Suspect]
     Active Substance: HUMAN IMMUNOGLOBULIN G
     Indication: IMMUNODEFICIENCY COMMON VARIABLE
     Route: 058
     Dates: start: 20150105
  9. ACETAMINOPHEN. [Concomitant]
     Active Substance: ACETAMINOPHEN
  10. ACETYL-L-CARNITINE [Concomitant]
  11. DIPHENHYDRAMINE. [Concomitant]
     Active Substance: DIPHENHYDRAMINE
  12. EPIPEN [Concomitant]
     Active Substance: EPINEPHRINE
  13. AMITRIPTYLINE [Concomitant]
     Active Substance: AMITRIPTYLINE
  14. LORTAB [Concomitant]
     Active Substance: ACETAMINOPHEN\HYDROCODONE BITARTRATE
  15. ACYCLOVIR. [Concomitant]
     Active Substance: ACYCLOVIR
  16. CLONAZEPAM. [Concomitant]
     Active Substance: CLONAZEPAM
  17. L-LYSINE [Concomitant]
     Active Substance: LYSINE
  18. NAMENDA [Concomitant]
     Active Substance: MEMANTINE HYDROCHLORIDE

REACTIONS (1)
  - Osteomyelitis [Unknown]
